FAERS Safety Report 20226131 (Version 1)
Quarter: 2021Q4

REPORT INFORMATION
  Report Type: Spontaneous
  Country: US (occurrence: US)
  Receive Date: 20211224
  Receipt Date: 20211224
  Transmission Date: 20220304
  Serious: Yes (Other)
  Sender: FDA-Public Use
  Company Number: US-AUROBINDO-AUR-APL-2021-051697

PATIENT
  Age: 65 Year
  Sex: Male

DRUGS (2)
  1. AMIODARONE HYDROCHLORIDE [Suspect]
     Active Substance: AMIODARONE HYDROCHLORIDE
     Indication: Product used for unknown indication
     Dosage: UNK
     Route: 065
  2. ENTRESTO [Suspect]
     Active Substance: SACUBITRIL\VALSARTAN
     Indication: Cardiac failure
     Dosage: UNK 24/26 (UNSPECIFIED UNITS), TWO TIMES A DAY
     Route: 048
     Dates: start: 20210201

REACTIONS (8)
  - Atrial fibrillation [Unknown]
  - Knee arthroplasty [Unknown]
  - Ejection fraction abnormal [Unknown]
  - Fluid retention [Unknown]
  - Cardiac ablation [Unknown]
  - Dyspnoea [Unknown]
  - Initial insomnia [Unknown]
  - Wrong technique in product usage process [Unknown]

NARRATIVE: CASE EVENT DATE: 20211008
